FAERS Safety Report 9117181 (Version 2)
Quarter: 2013Q1

REPORT INFORMATION
  Report Type: Spontaneous
  Country: US (occurrence: US)
  Receive Date: 20130225
  Receipt Date: 20130322
  Transmission Date: 20140127
  Serious: Yes (Death, Other)
  Sender: FDA-Public Use
  Company Number: US-JNJFOC-20130214145

PATIENT
  Sex: 0

DRUGS (5)
  1. DOXORUBICIN [Suspect]
     Indication: RENAL NEOPLASM
     Route: 042
  2. DACTINOMYCIN [Suspect]
     Indication: RENAL NEOPLASM
     Route: 065
  3. VINCRISTINE [Suspect]
     Indication: RENAL NEOPLASM
     Route: 065
  4. CYCLOPHOSPHAMIDE [Suspect]
     Indication: RENAL NEOPLASM
     Route: 065
  5. RADIOTHERAPY [Suspect]
     Indication: RENAL NEOPLASM
     Route: 065

REACTIONS (3)
  - Venoocclusive liver disease [Fatal]
  - Thrombocytopenia [Unknown]
  - Off label use [Unknown]
